FAERS Safety Report 10426545 (Version 1)
Quarter: 2014Q3

REPORT INFORMATION
  Report Type: Spontaneous
  Country: US (occurrence: US)
  Receive Date: 20140903
  Receipt Date: 20140903
  Transmission Date: 20150326
  Serious: No
  Sender: FDA-Public Use
  Company Number: US-PFIZER INC-2014240288

PATIENT
  Sex: Female

DRUGS (2)
  1. DETROL LA [Suspect]
     Active Substance: TOLTERODINE TARTRATE
     Dosage: 2 MG, UNK
  2. DETROL LA [Suspect]
     Active Substance: TOLTERODINE TARTRATE
     Dosage: 4 MG, UNK

REACTIONS (9)
  - Oropharyngeal pain [Recovered/Resolved]
  - Eructation [Recovered/Resolved]
  - Blood pressure increased [Recovered/Resolved]
  - Musculoskeletal chest pain [Recovered/Resolved]
  - Dry mouth [Recovered/Resolved]
  - Gastrooesophageal reflux disease [Recovered/Resolved]
  - Extrasystoles [Not Recovered/Not Resolved]
  - Chest pain [Recovered/Resolved]
  - Abdominal distension [Not Recovered/Not Resolved]
